FAERS Safety Report 14982063 (Version 5)
Quarter: 2019Q1

REPORT INFORMATION
  Report Type: Spontaneous
  Country: FI (occurrence: FI)
  Receive Date: 20180607
  Receipt Date: 20190125
  Transmission Date: 20190417
  Serious: Yes (Congenital Anomaly, Other)
  Sender: FDA-Public Use
  Company Number: FI-ASTRAZENECA-2018SE71077

PATIENT
  Sex: Male
  Weight: 2 kg

DRUGS (19)
  1. OPAMOX [Suspect]
     Active Substance: OXAZEPAM
     Indication: PRODUCT USED FOR UNKNOWN INDICATION
     Dosage: 15 MG 3XDAY, AND ADDITIONALLY 15-30 MG (MAX 30MG/DAY)
     Route: 064
     Dates: start: 20171020
  2. EMGESAN [Suspect]
     Active Substance: MAGNESIUM HYDROXIDE
     Indication: PRODUCT USED FOR UNKNOWN INDICATION
     Dosage: 125 MG, AS NEEDED (MAX 250 MG/DAY)
     Route: 064
     Dates: start: 20170922
  3. OXAMIN [Suspect]
     Active Substance: OXAZEPAM
     Indication: PRODUCT USED FOR UNKNOWN INDICATION
     Dosage: 30MG WHEN NEEDED, MAX. 30MG, 3 DF THREE TIMES A DAY
     Route: 064
     Dates: start: 20170922
  4. SEROQUEL [Suspect]
     Active Substance: QUETIAPINE FUMARATE
     Indication: PRODUCT USED FOR UNKNOWN INDICATION
     Route: 064
     Dates: start: 20170922
  5. OPAMOX [Suspect]
     Active Substance: OXAZEPAM
     Indication: PRODUCT USED FOR UNKNOWN INDICATION
     Dosage: 15 MG 3XDAY, AND AS NEEDED 15-30 MG (MAX 30 MG/DAY)
     Route: 064
     Dates: start: 20170922
  6. PANADOL FORTE (ACETAMINOPHEN) [Suspect]
     Active Substance: ACETAMINOPHEN
     Indication: PRODUCT USED FOR UNKNOWN INDICATION
     Dosage: 1 G, AS NEEDED (MAX 3 G/DAY)
     Route: 064
     Dates: start: 20171020
  7. SEROQUEL [Suspect]
     Active Substance: QUETIAPINE FUMARATE
     Indication: PRODUCT USED FOR UNKNOWN INDICATION
     Dosage: KETIPINOR, 100 MG + 100 MG + 200
     Route: 064
     Dates: start: 20171020
  8. EMGESAN [Suspect]
     Active Substance: MAGNESIUM HYDROXIDE
     Indication: PRODUCT USED FOR UNKNOWN INDICATION
     Dosage: 125 MG, AS NEEDED (MAX 250 MG/DAY)
     Route: 064
     Dates: start: 20170824
  9. SEROQUEL [Suspect]
     Active Substance: QUETIAPINE FUMARATE
     Indication: PRODUCT USED FOR UNKNOWN INDICATION
     Route: 064
     Dates: start: 20171020
  10. SEROQUEL [Suspect]
     Active Substance: QUETIAPINE FUMARATE
     Indication: PRODUCT USED FOR UNKNOWN INDICATION
     Dosage: KETIPINOR, 1-2 TABLETS A DAY
     Route: 064
     Dates: start: 20170505
  11. SEROQUEL [Suspect]
     Active Substance: QUETIAPINE FUMARATE
     Indication: PRODUCT USED FOR UNKNOWN INDICATION
     Dosage: KETIPINOR, 50 MG + 50 MG + 200 MG EVERY DAY
     Route: 064
     Dates: start: 20170922
  12. SEROQUEL [Suspect]
     Active Substance: QUETIAPINE FUMARATE
     Indication: PRODUCT USED FOR UNKNOWN INDICATION
     Route: 064
     Dates: start: 20170824
  13. SEROQUEL [Suspect]
     Active Substance: QUETIAPINE FUMARATE
     Indication: PRODUCT USED FOR UNKNOWN INDICATION
     Dosage: KETIPINOR, 2 TABLETS ONCE A DAY AND ADDITIONALLY 100 MG IF NEEDED (MAXIMUM 300 MG A DAY)
     Route: 064
     Dates: start: 20170824
  14. OBSIDAN (FERROUS GLYCINE SULFATE) [Suspect]
     Active Substance: FERROUS GLYCINE SULFATE
     Indication: ANAEMIA
     Route: 064
     Dates: start: 20171020
  15. EMGESAN [Suspect]
     Active Substance: MAGNESIUM HYDROXIDE
     Indication: PRODUCT USED FOR UNKNOWN INDICATION
     Dosage: 125 MG, AS NEEDED (MAX 250 MG/DAY)
     Route: 064
     Dates: start: 20171020
  16. OXAMIN [Suspect]
     Active Substance: OXAZEPAM
     Indication: PRODUCT USED FOR UNKNOWN INDICATION
     Dosage: 30MG WHEN NEEDED, MAX. 30MG, 3 DF THREE TIMES A DAY
     Route: 064
     Dates: start: 20171020
  17. OXAMIN [Suspect]
     Active Substance: OXAZEPAM
     Indication: PRODUCT USED FOR UNKNOWN INDICATION
     Route: 064
     Dates: start: 20170824
  18. LORAZEPAM. [Suspect]
     Active Substance: LORAZEPAM
     Indication: PRODUCT USED FOR UNKNOWN INDICATION
     Dosage: AS NEEDED 4 MG/ML (MAX 8 MG/ML/DAY)
     Route: 064
     Dates: start: 20171020
  19. TENOX (TEMAZEPAM) [Suspect]
     Active Substance: TEMAZEPAM
     Indication: PRODUCT USED FOR UNKNOWN INDICATION
     Dosage: 1 TABLET IN THE EVENING AS NEEDED (MAX 20MG/DAY)
     Route: 064
     Dates: start: 20170505

REACTIONS (14)
  - Premature baby [Unknown]
  - Poor feeding infant [Unknown]
  - Polydactyly [Unknown]
  - Foetal exposure during pregnancy [Recovered/Resolved]
  - Small for dates baby [Unknown]
  - Hereditary disorder [Unknown]
  - Cardiac septal defect [Unknown]
  - Foot deformity [Unknown]
  - Congenital renal disorder [Unknown]
  - Poor sucking reflex [Unknown]
  - Heart disease congenital [Unknown]
  - Head deformity [Unknown]
  - Heterotaxia [Unknown]
  - Foetal hypokinesia [Unknown]

NARRATIVE: CASE EVENT DATE: 2017
